FAERS Safety Report 4799867-7 (Version None)
Quarter: 2005Q4

REPORT INFORMATION
  Report Type: 
  Country: None (occurrence: None)
  Receive Date: 20051017
  Receipt Date: 20051005
  Transmission Date: 20060501
  Serious: Yes (Hospitalization)
  Sender: FDA-Public Use
  Company Number: US-BRISTOL-MYERS SQUIBB COMPANY-13133483

PATIENT
  Age: 48 Year
  Sex: Male
  Weight: 68 kg

DRUGS (4)
  1. PROLIXIN [Suspect]
     Indication: SCHIZOPHRENIA
     Dates: start: 20050422
  2. COGENTIN [Concomitant]
     Dates: start: 20050421
  3. ZYPREXA [Concomitant]
     Dates: start: 20050421
  4. DEPAKOTE [Concomitant]
     Dates: start: 20050421

REACTIONS (5)
  - CATATONIA [None]
  - CIRCULATORY COLLAPSE [None]
  - DYSPHASIA [None]
  - HYPOAESTHESIA [None]
  - PARKINSONISM [None]
